FAERS Safety Report 7536999-4 (Version None)
Quarter: 2011Q2

REPORT INFORMATION
  Report Type: 
  Country: None (occurrence: None)
  Receive Date: 20110609
  Receipt Date: 20110601
  Transmission Date: 20111010
  Serious: Yes (Other)
  Sender: FDA-Public Use
  Company Number: PHHY2011CA49715

PATIENT
  Age: 60 Year
  Sex: Female

DRUGS (4)
  1. LEUCOVORIN CALCIUM [Suspect]
     Indication: RECTOSIGMOID CANCER
     Dosage: 200 MG/M2, UNK
  2. CISPLATIN [Suspect]
     Indication: RECTOSIGMOID CANCER
     Dosage: 100 MG/M2, UNK
     Route: 042
  3. FLUOROURACIL [Suspect]
     Indication: RECTOSIGMOID CANCER
     Dosage: 1000 MG/M2, UNK
     Route: 042
  4. OXALIPLATIN [Suspect]
     Indication: RECTOSIGMOID CANCER
     Dosage: 85 MG/M2, UNK
     Route: 042

REACTIONS (3)
  - MUSCULOSKELETAL PAIN [None]
  - INTERMITTENT CLAUDICATION [None]
  - AORTIC THROMBOSIS [None]
